FAERS Safety Report 15696715 (Version 1)
Quarter: 2018Q4

REPORT INFORMATION
  Report Type: Report from Study
  Country: US (occurrence: US)
  Receive Date: 20181206
  Receipt Date: 20181206
  Transmission Date: 20190205
  Serious: Yes (Hospitalization)
  Sender: FDA-Public Use
  Company Number: US-GILEAD-2018-0378435

PATIENT
  Sex: Female

DRUGS (13)
  1. ACETYLCYSTEIN [Concomitant]
     Active Substance: ACETYLCYSTEINE
  2. COLISTIMETHATE SODIUM. [Concomitant]
     Active Substance: COLISTIMETHATE SODIUM
  3. FLUTICASONE. [Concomitant]
     Active Substance: FLUTICASONE
  4. FONDAPARINUX [Concomitant]
     Active Substance: FONDAPARINUX
  5. RIMANTADINE [Concomitant]
     Active Substance: RIMANTADINE HYDROCHLORIDE
  6. LANTUS [Concomitant]
     Active Substance: INSULIN GLARGINE
  7. LEVALBUTEROL HCL [Concomitant]
     Active Substance: LEVALBUTEROL HYDROCHLORIDE
  8. AZITHROMYCIN ANHYDROUS. [Concomitant]
     Active Substance: AZITHROMYCIN ANHYDROUS
  9. IPRATROPIUM [Concomitant]
     Active Substance: IPRATROPIUM
  10. WARFARIN [Concomitant]
     Active Substance: WARFARIN
  11. LANSOPRAZOLE. [Concomitant]
     Active Substance: LANSOPRAZOLE
  12. AZTREONAM LYSINE [Suspect]
     Active Substance: AZTREONAM LYSINE
     Indication: CYSTIC FIBROSIS
     Dosage: 1 DF, TID (28 DAYS AND THEN OFF FOR 28 DAYS)
     Route: 055
     Dates: start: 20150417
  13. ZENPEP [Concomitant]
     Active Substance: PANCRELIPASE AMYLASE\PANCRELIPASE LIPASE\PANCRELIPASE PROTEASE

REACTIONS (1)
  - Lung disorder [Unknown]
